FAERS Safety Report 8829293 (Version 1)
Quarter: 2012Q4

REPORT INFORMATION
  Report Type: Spontaneous
  Country: US (occurrence: None)
  Receive Date: 20121005
  Receipt Date: 20121005
  Transmission Date: 20130627
  Serious: Yes (Hospitalization)
  Sender: FDA-Public Use
  Company Number: None

PATIENT
  Age: 67 Year
  Sex: Female
  Weight: 104.33 kg

DRUGS (1)
  1. SULFAMETHOXAZOLE\TRIMETHOPRIM [Suspect]
     Indication: BLADDER INFECTION
     Dosage: 2x daily
     Dates: start: 20120809, end: 20120815

REACTIONS (6)
  - Rash generalised [None]
  - Pruritus [None]
  - Skin burning sensation [None]
  - Glossodynia [None]
  - Paraesthesia oral [None]
  - Paraesthesia oral [None]
